FAERS Safety Report 24328048 (Version 1)
Quarter: 2024Q3

REPORT INFORMATION
  Report Type: Spontaneous
  Country: ES (occurrence: ES)
  Receive Date: 20240917
  Receipt Date: 20240917
  Transmission Date: 20241016
  Serious: Yes (Death)
  Sender: FRESENIUS KABI
  Company Number: ES-PFIZER INC-2019100784

PATIENT
  Age: 64 Year
  Sex: Male

DRUGS (1)
  1. IRINOTECAN HYDROCHLORIDE [Suspect]
     Active Substance: IRINOTECAN HYDROCHLORIDE
     Indication: Colorectal cancer metastatic
     Dosage: 253.2 MG, FORTNIGHTY
     Route: 042
     Dates: start: 20181218, end: 20190124

REACTIONS (2)
  - Vomiting [Fatal]
  - Diarrhoea [Fatal]

NARRATIVE: CASE EVENT DATE: 20190204
